FAERS Safety Report 7331394-5 (Version None)
Quarter: 2011Q1

REPORT INFORMATION
  Report Type: 
  Country: None (occurrence: None)
  Receive Date: 20110228
  Receipt Date: 20110228
  Transmission Date: 20110831
  Serious: No
  Sender: FDA-Public Use
  Company Number: None

PATIENT

DRUGS (1)
  1. HYLAND'S TEETHING TABLETS [Suspect]

REACTIONS (4)
  - PRODUCT QUALITY ISSUE [None]
  - SKIN DISCOLOURATION [None]
  - CHOKING [None]
  - DRUG INEFFECTIVE [None]
